FAERS Safety Report 20267613 (Version 1)
Quarter: 2021Q4

REPORT INFORMATION
  Report Type: Spontaneous
  Country: IT (occurrence: IT)
  Receive Date: 20211231
  Receipt Date: 20211231
  Transmission Date: 20220303
  Serious: Yes (Other)
  Sender: FDA-Public Use
  Company Number: IT-CELGENE-ITA-20211208794

PATIENT
  Age: 80 Year
  Sex: Male

DRUGS (4)
  1. AZACITIDINE [Suspect]
     Active Substance: AZACITIDINE
     Indication: Acute myeloid leukaemia
     Dosage: 75 MICROGRAM/SQ. METER
     Route: 065
  2. AZACITIDINE [Suspect]
     Active Substance: AZACITIDINE
     Indication: Off label use
  3. VENETOCLAX [Suspect]
     Active Substance: VENETOCLAX
     Indication: Acute myeloid leukaemia
     Dosage: 100 MG ON DAY 1, 200 MG ON DAY 2 AND FROM DAY 3 ON THE?TARGET DOSE OF 400 M
     Route: 048
  4. VENETOCLAX [Suspect]
     Active Substance: VENETOCLAX
     Indication: Off label use

REACTIONS (3)
  - Angiodysplasia [Not Recovered/Not Resolved]
  - Melaena [Not Recovered/Not Resolved]
  - Pancytopenia [Not Recovered/Not Resolved]
